FAERS Safety Report 5721685-3 (Version None)
Quarter: 2008Q2

REPORT INFORMATION
  Report Type: 
  Country: None (occurrence: None)
  Receive Date: 20080429
  Receipt Date: 20080417
  Transmission Date: 20081010
  Serious: Yes (Hospitalization)
  Sender: FDA-Public Use
  Company Number: FR-ROCHE-559776

PATIENT
  Sex: Female

DRUGS (21)
  1. RIVOTRIL [Suspect]
     Indication: DRUG USE FOR UNKNOWN INDICATION
     Route: 048
  2. RIVOTRIL [Suspect]
     Dosage: DOSE DECREASED
     Route: 048
  3. ATHYMIL [Suspect]
     Indication: DRUG USE FOR UNKNOWN INDICATION
     Dosage: DOSING REGIMEN: ONE DOSE PER DAY
     Route: 048
  4. EQUANIL [Suspect]
     Indication: DRUG USE FOR UNKNOWN INDICATION
     Dosage: 1/2 DOSE IN THE MORNING AND IN THE EVENING.
     Route: 048
  5. EQUANIL [Suspect]
     Dosage: ONE DOSE THRICE DAILY
     Route: 048
  6. EQUANIL [Suspect]
     Dosage: 1/2 DOSE IN MORNING, LUNCH TIME AND EVENING (DOSE DECREASED).
     Route: 048
  7. STILNOX [Suspect]
     Indication: DRUG USE FOR UNKNOWN INDICATION
     Route: 048
  8. STILNOX [Suspect]
     Dosage: DOSE DECREASED
     Route: 048
  9. DI-ANTALVIC [Suspect]
     Indication: DRUG USE FOR UNKNOWN INDICATION
     Dosage: DOSING REGIMEN: ONE DOSE SIX TIMES PER DAY
     Route: 048
  10. DI-ANTALVIC [Suspect]
     Dosage: DOSING REGIMEN: ONE DOSE SIX TIMES PER DAY
     Route: 048
  11. TERCIAN [Suspect]
     Indication: DRUG USE FOR UNKNOWN INDICATION
     Route: 048
  12. ACTISKENAN [Suspect]
     Indication: DRUG USE FOR UNKNOWN INDICATION
     Dosage: DOSING REGIMEN: ONE DOSE THREE TIMES PER DAY
     Route: 048
  13. ACTISKENAN [Suspect]
     Dosage: 5 MG IF PAIN (MAXIMUM 4 DOSES PER DAY) DECREASE OF DOSAGE
     Route: 048
  14. AUGMENTIN '125' [Concomitant]
     Dosage: DOSING REGIMEN: 1 GRAM THIRD PER DAY
     Route: 042
  15. AUGMENTIN '125' [Concomitant]
     Dosage: DOSING REGIMEN: 1 GRAM THIRD PER DAY
     Route: 042
  16. NARCAN [Concomitant]
  17. AUGMENTIN '125' [Concomitant]
     Dosage: DOSING REGIMEN: 1 GRAM THIRD PER DAY, DOSAGE REDUCED
     Route: 048
  18. AUGMENTIN '125' [Concomitant]
     Dosage: DOSING REGIMEN: 1 GRAM THIRD PER DAY, DOSAGE REDUCED
     Route: 048
  19. PLAVIX [Concomitant]
     Dosage: DOSING REGIMEN: ONE DOSE PER DAY
     Route: 048
  20. CARDENSIEL [Concomitant]
     Dosage: DOSING REGIMEN: ONE DOSE PER DAY
     Route: 048
  21. TRIATEC [Concomitant]
     Dosage: DOSING REGIMEN: ONE DOSE PER DAY
     Route: 048

REACTIONS (3)
  - DISTURBANCE IN ATTENTION [None]
  - HYPOREFLEXIA [None]
  - HYPOTENSION [None]
